FAERS Safety Report 7884446-5 (Version None)
Quarter: 2011Q4

REPORT INFORMATION
  Report Type: 
  Country: None (occurrence: None)
  Receive Date: 20111102
  Receipt Date: 20110830
  Transmission Date: 20120403
  Serious: No
  Sender: FDA-Public Use
  Company Number: US-ASTRAZENECA-2011SE52105

PATIENT
  Age: 64 Year
  Sex: Male

DRUGS (2)
  1. VANDETANIB [Suspect]
     Indication: THYROID CANCER
     Route: 048
  2. LEVOXYL [Concomitant]

REACTIONS (2)
  - FATIGUE [None]
  - RENAL DISORDER [None]
